FAERS Safety Report 21450138 (Version 2)
Quarter: 2025Q2

REPORT INFORMATION
  Report Type: Spontaneous
  Country: US (occurrence: US)
  Receive Date: 20221013
  Receipt Date: 20250529
  Transmission Date: 20250717
  Serious: No
  Sender: CIPLA
  Company Number: US-CIPLA LTD.-2022US05915

PATIENT

DRUGS (3)
  1. ALBUTEROL [Suspect]
     Active Substance: ALBUTEROL
     Indication: COVID-19
     Dosage: 0.09 MILLIGRAM, QID
     Dates: start: 202208, end: 2022
  2. ALBUTEROL [Suspect]
     Active Substance: ALBUTEROL
     Dosage: 0.09 MILLIGRAM, QID
     Dates: start: 202209
  3. ROSUVASTATIN [Concomitant]
     Active Substance: ROSUVASTATIN
     Indication: Blood cholesterol increased
     Dosage: 10 MILLIGRAM, QD (IN THE MORNING)
     Route: 065
     Dates: start: 2017

REACTIONS (8)
  - Incorrect dose administered by device [Not Recovered/Not Resolved]
  - Off label use [Not Recovered/Not Resolved]
  - Product use in unapproved indication [Not Recovered/Not Resolved]
  - Device delivery system issue [Unknown]
  - Product cleaning inadequate [Unknown]
  - Product delivery mechanism issue [Unknown]
  - Product substitution issue [Unknown]
  - Device issue [Unknown]

NARRATIVE: CASE EVENT DATE: 20220101
